FAERS Safety Report 9586237 (Version 1)
Quarter: 2013Q4

REPORT INFORMATION
  Report Type: Spontaneous
  Country: DE (occurrence: None)
  Receive Date: 20131001
  Receipt Date: 20131001
  Transmission Date: 20140711
  Serious: Yes (Disabling, Other)
  Sender: FDA-Public Use
  Company Number: GB-DEXPHARM-20130665

PATIENT
  Age: 39 Year
  Sex: Male

DRUGS (1)
  1. OMEPRAZOLE [Suspect]
     Indication: GASTROOESOPHAGEAL REFLUX DISEASE
     Dosage: 50 MG WITH 3-4 WEEKS OF CESSATION
     Route: 048
     Dates: start: 20130401, end: 20130810

REACTIONS (11)
  - Abdominal pain [None]
  - Dyspnoea [None]
  - Contusion [None]
  - Pneumothorax [None]
  - Liver disorder [None]
  - Night sweats [None]
  - Faeces pale [None]
  - Tenderness [None]
  - Carotid pulse abnormal [None]
  - Chromaturia [None]
  - Lung infection [None]
